FAERS Safety Report 4611515-5 (Version None)
Quarter: 2005Q1

REPORT INFORMATION
  Report Type: 
  Country: None (occurrence: None)
  Receive Date: 20050317
  Receipt Date: 20050226
  Transmission Date: 20050727
  Serious: Yes (Hospitalization)
  Sender: FDA-Public Use
  Company Number: US-ROCHE-396716

PATIENT
  Age: 64 Year
  Sex: Male
  Weight: 90 kg

DRUGS (3)
  1. CAPECITABINE [Suspect]
     Route: 048
     Dates: start: 20050119, end: 20050126
  2. BEVACIZUMAB [Suspect]
     Route: 042
     Dates: start: 20050119
  3. GEMCITABINE [Suspect]
     Route: 042
     Dates: start: 20050119, end: 20050126

REACTIONS (2)
  - DIVERTICULITIS [None]
  - GASTRITIS [None]
